FAERS Safety Report 5631352-2 (Version None)
Quarter: 2008Q1

REPORT INFORMATION
  Report Type: 
  Country: None (occurrence: None)
  Receive Date: 20080212
  Receipt Date: 20080128
  Transmission Date: 20080703
  Serious: Yes (Hospitalization)
  Sender: FDA-Public Use
  Company Number: 2008BI002568

PATIENT
  Sex: Male

DRUGS (2)
  1. ZEVALIN [Suspect]
     Indication: NON-HODGKIN'S LYMPHOMA
     Dosage: 1ML; 1X; IV
     Route: 042
     Dates: start: 20040101, end: 20060206
  2. RITUXIMAB [Concomitant]

REACTIONS (2)
  - ANAPHYLACTIC REACTION [None]
  - HUMAN ANTI-MOUSE ANTIBODY INCREASED [None]
